FAERS Safety Report 7000871-9 (Version None)
Quarter: 2010Q3

REPORT INFORMATION
  Report Type: 
  Country: None (occurrence: None)
  Receive Date: 20100920
  Receipt Date: 20100908
  Transmission Date: 20110219
  Serious: Yes (Hospitalization)
  Sender: FDA-Public Use
  Company Number: PHHY2010FR59768

PATIENT
  Age: 60 Year
  Sex: Male

DRUGS (3)
  1. RASILEZ [Suspect]
     Dosage: 300 MG
     Route: 048
  2. ANGIOTENSIN CONVERTING ENZYME BLOCKERS [Suspect]
  3. BETA BLOCKING AGENTS [Concomitant]

REACTIONS (4)
  - ANURIA [None]
  - DYSPEPSIA [None]
  - HYPERCREATININAEMIA [None]
  - VOMITING [None]
